FAERS Safety Report 6143311-4 (Version None)
Quarter: 2009Q2

REPORT INFORMATION
  Report Type: 
  Country: None (occurrence: None)
  Receive Date: 20090403
  Receipt Date: 20090325
  Transmission Date: 20091009
  Serious: Yes (Hospitalization)
  Sender: FDA-Public Use
  Company Number: B0540815A

PATIENT
  Sex: Female

DRUGS (8)
  1. SERETIDE [Suspect]
     Indication: ASTHMA
     Dosage: 2PUFF TWICE PER DAY
     Route: 055
     Dates: start: 20060101
  2. VENTOLIN [Suspect]
     Indication: ASTHMA
     Dosage: 100MCG AS REQUIRED
     Route: 055
  3. AMLODIPINE BESYLATE [Suspect]
     Indication: HYPERTENSION
     Dosage: 5MG PER DAY
     Route: 048
  4. FOLIC ACID [Suspect]
     Indication: DRUG USE FOR UNKNOWN INDICATION
     Dosage: 5MG PER DAY
     Route: 048
  5. METHOTREXATE [Suspect]
     Indication: RHEUMATOID ARTHRITIS
     Dosage: 17.5MG WEEKLY
     Route: 048
  6. PARACETAMOL [Suspect]
     Indication: PAIN
     Dosage: 1000MG THREE TIMES PER DAY
  7. PERINDOPRIL ERBUMINE [Suspect]
     Indication: HYPERTENSION
     Dosage: 4MG PER DAY
     Route: 048
  8. SULFASALAZINE [Suspect]
     Indication: RHEUMATOID ARTHRITIS
     Dosage: 1000MG THREE TIMES PER DAY
     Route: 048

REACTIONS (6)
  - BUNION OPERATION [None]
  - COUGH [None]
  - IMPAIRED HEALING [None]
  - LOWER RESPIRATORY TRACT INFECTION [None]
  - ORAL CANDIDIASIS [None]
  - TOE OPERATION [None]
